FAERS Safety Report 5161814-6 (Version None)
Quarter: 2006Q4

REPORT INFORMATION
  Report Type: 
  Country: None (occurrence: None)
  Receive Date: 20061130
  Receipt Date: 20061108
  Transmission Date: 20070319
  Serious: No
  Sender: FDA-Public Use
  Company Number: BR-ELI_LILLY_AND_COMPANY-BR200611004865

PATIENT
  Sex: Male

DRUGS (1)
  1. CIALIS [Suspect]
     Dosage: 20 MG, UNKNOWN
     Route: 048

REACTIONS (2)
  - HEADACHE [None]
  - VISION BLURRED [None]
